FAERS Safety Report 24827696 (Version 2)
Quarter: 2025Q2

REPORT INFORMATION
  Report Type: Spontaneous
  Country: JP (occurrence: JP)
  Receive Date: 20250109
  Receipt Date: 20250409
  Transmission Date: 20250717
  Serious: Yes (Other)
  Sender: BRISTOL MYERS SQUIBB
  Company Number: JP-ONO-2025JP000364

PATIENT
  Age: 74 Year
  Sex: Female
  Weight: 54.9 kg

DRUGS (1)
  1. OPDIVO [Suspect]
     Active Substance: NIVOLUMAB
     Indication: Gastric cancer
     Route: 041

REACTIONS (3)
  - Delirium [Unknown]
  - Altered state of consciousness [Unknown]
  - Aggression [Unknown]
